FAERS Safety Report 8231675-7 (Version None)
Quarter: 2012Q1

REPORT INFORMATION
  Report Type: 
  Country: None (occurrence: None)
  Receive Date: 20120323
  Receipt Date: 20120315
  Transmission Date: 20120608
  Serious: Yes (Hospitalization, Other)
  Sender: FDA-Public Use
  Company Number: JP-MPIJNJ-2011-06559

PATIENT

DRUGS (13)
  1. VELCADE [Suspect]
     Indication: MULTIPLE MYELOMA
     Dosage: 1.7 MG, 2/WEEK
     Route: 042
     Dates: start: 20111107
  2. ALLOPURINOL [Concomitant]
     Indication: HYPERURICAEMIA
     Dosage: 100 MG, UNK
     Route: 048
     Dates: start: 20111107
  3. AMLODIPINE [Concomitant]
     Indication: HYPERTENSION
     Dosage: 5 MG, BID
     Route: 048
     Dates: start: 20100519
  4. LENDORMIN [Concomitant]
     Indication: INSOMNIA
     Dosage: 0.25 MG, UNK
     Route: 048
     Dates: start: 20111115
  5. RABEPRAZOLE SODIUM [Concomitant]
     Indication: GASTRITIS PROPHYLAXIS
     Dosage: 10 MG, UNK
     Route: 048
     Dates: start: 20100617
  6. VALTREX [Concomitant]
     Indication: INFECTION PROPHYLAXIS
     Dosage: 250 MG, UNK
     Route: 048
     Dates: start: 20111107
  7. PANOBINOSTAT [Suspect]
     Indication: MULTIPLE MYELOMA
     Dosage: 15 MG, 3/WEEK
     Route: 048
     Dates: start: 20111107
  8. METHYCOBAL                         /00324901/ [Concomitant]
     Indication: NEUROPATHY PERIPHERAL
     Dosage: 500 UG, TID
     Route: 048
     Dates: start: 20100526
  9. VELCADE [Suspect]
     Dosage: 1 MG/M2, UNK
     Route: 042
     Dates: start: 20111205
  10. MAGMITT [Concomitant]
     Indication: CONSTIPATION PROPHYLAXIS
     Dosage: 330 MG, PRN
     Route: 048
     Dates: start: 20111108
  11. OLMESARTAN MEDOXOMIL [Concomitant]
     Indication: HYPERTENSION
     Dosage: 20 MG, BID
     Route: 048
     Dates: start: 20080501
  12. DEXAMETHASONE [Suspect]
     Indication: MULTIPLE MYELOMA
     Dosage: 20 MG, UNK
     Route: 048
     Dates: start: 20111107
  13. SENNOSIDE                          /00571902/ [Concomitant]
     Indication: CONSTIPATION PROPHYLAXIS
     Dosage: 12 MG, UNK
     Route: 048
     Dates: start: 20111108

REACTIONS (5)
  - HAEMOGLOBIN DECREASED [None]
  - PNEUMONIA [None]
  - GASTROENTERITIS [None]
  - BLOOD CREATININE INCREASED [None]
  - PLATELET COUNT DECREASED [None]
